FAERS Safety Report 25594052 (Version 2)
Quarter: 2025Q3

REPORT INFORMATION
  Report Type: Spontaneous
  Country: EU (occurrence: EU)
  Receive Date: 20250723
  Receipt Date: 20250729
  Transmission Date: 20251021
  Serious: Yes (Life-Threatening, Other)
  Sender: LEO PHARM
  Company Number: EU-LEO Pharma-381528

PATIENT
  Sex: Male

DRUGS (1)
  1. TACLONEX [Suspect]
     Active Substance: BETAMETHASONE DIPROPIONATE\CALCIPOTRIENE\CALCIPOTRIENE HYDRATE
     Indication: Psoriasis
     Route: 003
     Dates: end: 20250715

REACTIONS (4)
  - Blood glucose increased [Recovered/Resolved]
  - Product administered at inappropriate site [Unknown]
  - Hyperhidrosis [Unknown]
  - Metabolic disorder [Unknown]
